FAERS Safety Report 20718772 (Version 4)
Quarter: 2022Q2

REPORT INFORMATION
  Report Type: Other
  Country: CA (occurrence: None)
  Receive Date: 20220418
  Receipt Date: 20220511
  Transmission Date: 20220721
  Serious: Yes (Hospitalization, Other)
  Sender: FDA-Public Use
  Company Number: CA-ROCHE-3070274

PATIENT
  Sex: Female

DRUGS (1)
  1. OCREVUS [Suspect]
     Active Substance: OCRELIZUMAB
     Indication: Primary progressive multiple sclerosis
     Dosage: MORE DOSAGE INFORMATION IS 300 MG AT DAY 0 AND 14
     Route: 042
     Dates: start: 20190712

REACTIONS (4)
  - COVID-19 [Recovered/Resolved]
  - Fall [Unknown]
  - Rib fracture [Recovering/Resolving]
  - Movement disorder [Recovering/Resolving]
